FAERS Safety Report 20866097 (Version 1)
Quarter: 2022Q2

REPORT INFORMATION
  Report Type: Spontaneous
  Country: US (occurrence: None)
  Receive Date: 20220523
  Receipt Date: 20220523
  Transmission Date: 20220721
  Serious: Yes (Hospitalization)
  Sender: FDA-Public Use
  Company Number: None

PATIENT
  Age: 65 Year
  Sex: Male
  Weight: 74 kg

DRUGS (2)
  1. WARFARIN SODIUM [Suspect]
     Active Substance: WARFARIN SODIUM
     Indication: Deep vein thrombosis
     Dates: start: 20210512, end: 20211011
  2. PRASUGREL HYDROCHLORIDE [Suspect]
     Active Substance: PRASUGREL HYDROCHLORIDE
     Indication: Vascular device user
     Dates: start: 20210201

REACTIONS (6)
  - Dyspnoea [None]
  - Anaemia [None]
  - Therapy interrupted [None]
  - Gastrointestinal haemorrhage [None]
  - Nodule [None]
  - Oesophageal disorder [None]

NARRATIVE: CASE EVENT DATE: 20211011
